FAERS Safety Report 5229488-3 (Version None)
Quarter: 2007Q1

REPORT INFORMATION
  Report Type: 
  Country: None (occurrence: None)
  Receive Date: 20061201
  Receipt Date: 20060912
  Transmission Date: 20070707
  Serious: No
  Sender: FDA-Public Use
  Company Number: 2006PV021149

PATIENT
  Age: 52 Year
  Sex: Male
  Weight: 86.1834 kg

DRUGS (4)
  1. BYETTA [Suspect]
     Indication: DIABETES MELLITUS NON-INSULIN-DEPENDENT
     Dosage: 5 MCG;BID;SC
     Route: 058
     Dates: start: 20060906
  2. METFORMIN HCL [Concomitant]
  3. AMARYL [Concomitant]
  4. ACTOPLUS/METFORMIN [Concomitant]

REACTIONS (4)
  - BLOOD GLUCOSE INCREASED [None]
  - DRUG INEFFECTIVE [None]
  - NASOPHARYNGITIS [None]
  - RHINORRHOEA [None]
